FAERS Safety Report 6513001-4 (Version None)
Quarter: 2009Q4

REPORT INFORMATION
  Report Type: 
  Country: None (occurrence: None)
  Receive Date: 20091222
  Receipt Date: 20091222
  Transmission Date: 20100525
  Serious: Yes (Hospitalization)
  Sender: FDA-Public Use
  Company Number: None

PATIENT
  Age: 62 Year
  Sex: Male
  Weight: 83.01 kg

DRUGS (1)
  1. IBUPROFEN [Suspect]
     Indication: HEADACHE
     Dosage: 200 MG UD PO
     Route: 048
     Dates: start: 20090914, end: 20090914

REACTIONS (4)
  - ANGIOEDEMA [None]
  - DROOLING [None]
  - DYSPHAGIA [None]
  - SWOLLEN TONGUE [None]
